FAERS Safety Report 20372280 (Version 1)
Quarter: 2022Q1

REPORT INFORMATION
  Report Type: Spontaneous
  Country: JP (occurrence: JP)
  Receive Date: 20220124
  Receipt Date: 20220124
  Transmission Date: 20220423
  Serious: Yes (Other)
  Sender: FDA-Public Use
  Company Number: JP-MTPC-MTPC2022-0001836

PATIENT

DRUGS (1)
  1. EDARAVONE [Suspect]
     Active Substance: EDARAVONE
     Route: 041

REACTIONS (1)
  - Mechanical ventilation [Unknown]
